FAERS Safety Report 5382543-X (Version None)
Quarter: 2007Q3

REPORT INFORMATION
  Report Type: 
  Country: None (occurrence: None)
  Receive Date: 20070710
  Receipt Date: 20070702
  Transmission Date: 20080115
  Serious: Yes (Other)
  Sender: FDA-Public Use
  Company Number: PHNU2007DE01582

PATIENT
  Age: 54 Year
  Sex: Female
  Weight: 60.4 kg

DRUGS (2)
  1. FEMARA [Suspect]
     Indication: BREAST CANCER
     Dosage: 2.5 MG, QD
     Route: 048
     Dates: start: 20061130
  2. HERCEPTIN [Concomitant]
     Route: 065
     Dates: start: 20070103

REACTIONS (6)
  - CARPAL TUNNEL SYNDROME [None]
  - CONDITION AGGRAVATED [None]
  - GENERAL PHYSICAL HEALTH DETERIORATION [None]
  - HERPES ZOSTER OPHTHALMIC [None]
  - POST HERPETIC NEURALGIA [None]
  - SURGERY [None]
